FAERS Safety Report 8199951-4 (Version None)
Quarter: 2012Q1

REPORT INFORMATION
  Report Type: 
  Country: None (occurrence: None)
  Receive Date: 20120306
  Receipt Date: 20120220
  Transmission Date: 20120608
  Serious: Yes (Hospitalization, Other)
  Sender: FDA-Public Use
  Company Number: US-2011-10755

PATIENT
  Age: 42 Year
  Sex: Male

DRUGS (15)
  1. MELOXICAM [Concomitant]
  2. ONDANSETRON [Concomitant]
  3. OXYCODONE HCL [Concomitant]
  4. ETOPOSIDE [Concomitant]
  5. RANTIDINE (RANITIDINE HYDROCHLORIDE) [Concomitant]
  6. BUSULFAN [Suspect]
     Indication: LYMPHOMA
     Dosage: 76 MG MILLIGRAM(S), DAILY DOSE, INTRAVENOUS, 367 MG MILLIGRAM(S), DAILY DOSE, INTRAVENOUS
     Route: 042
     Dates: start: 20110623, end: 20110626
  7. BUSULFAN [Suspect]
     Indication: LYMPHOMA
     Dosage: 76 MG MILLIGRAM(S), DAILY DOSE, INTRAVENOUS, 367 MG MILLIGRAM(S), DAILY DOSE, INTRAVENOUS
     Route: 042
     Dates: start: 20110621, end: 20110621
  8. CYCLOPHOSPHAMIDE [Concomitant]
  9. FUROSEMIDE (FUROSEMIDE) [Concomitant]
  10. BACTRIM DS [Concomitant]
  11. ZOFRAN [Concomitant]
  12. ATENOLOL [Concomitant]
  13. VICODIN [Concomitant]
  14. ACYCLOVIR [Concomitant]
  15. FLUCONAZOLE [Concomitant]

REACTIONS (2)
  - PNEUMONITIS [None]
  - SLEEP APNOEA SYNDROME [None]
